FAERS Safety Report 15318546 (Version 2)
Quarter: 2019Q2

REPORT INFORMATION
  Report Type: Spontaneous
  Country: US (occurrence: US)
  Receive Date: 20180825
  Receipt Date: 20190419
  Transmission Date: 20190711
  Serious: Yes (Death, Hospitalization)
  Sender: FDA-Public Use
  Company Number: US-JNJFOC-20180816438

PATIENT
  Age: 76 Year
  Sex: Female
  Weight: 68.03 kg

DRUGS (3)
  1. XARELTO [Suspect]
     Active Substance: RIVAROXABAN
     Indication: CEREBROVASCULAR ACCIDENT PROPHYLAXIS
     Route: 048
     Dates: start: 20150605, end: 20151113
  2. XARELTO [Suspect]
     Active Substance: RIVAROXABAN
     Indication: THROMBOSIS PROPHYLAXIS
     Route: 048
     Dates: start: 20150605, end: 20151113
  3. XARELTO [Suspect]
     Active Substance: RIVAROXABAN
     Indication: ATRIAL FIBRILLATION
     Route: 048
     Dates: start: 20150605, end: 20151113

REACTIONS (4)
  - Subarachnoid haemorrhage [Fatal]
  - Head injury [Fatal]
  - Subdural haematoma [Fatal]
  - Fall [Fatal]

NARRATIVE: CASE EVENT DATE: 20151112
